FAERS Safety Report 13580701 (Version 1)
Quarter: 2017Q2

REPORT INFORMATION
  Report Type: Spontaneous
  Country: US (occurrence: US)
  Receive Date: 20170525
  Receipt Date: 20170525
  Transmission Date: 20170830
  Serious: No
  Sender: FDA-Public Use
  Company Number: US-VIIV HEALTHCARE LIMITED-US2017077814

PATIENT
  Sex: Female

DRUGS (3)
  1. RIFAMPIN CAPSULE [Suspect]
     Active Substance: RIFAMPIN
     Indication: TUBERCULOSIS
     Dosage: UNK
     Dates: end: 20170519
  2. TIVICAY [Suspect]
     Active Substance: DOLUTEGRAVIR SODIUM
     Indication: HIV INFECTION
     Dosage: UNK UNK, BID
     Route: 048
     Dates: end: 20170519
  3. EPZICOM [Suspect]
     Active Substance: ABACAVIR SULFATE\LAMIVUDINE
     Indication: HIV INFECTION
     Dosage: UNK UNK, QD
     Route: 048
     Dates: end: 20170519

REACTIONS (4)
  - Vomiting [Unknown]
  - Malaise [Unknown]
  - Diarrhoea [Unknown]
  - Nausea [Unknown]
